FAERS Safety Report 11691573 (Version 3)
Quarter: 2015Q4

REPORT INFORMATION
  Report Type: Spontaneous
  Country: US (occurrence: US)
  Receive Date: 20151102
  Receipt Date: 20151222
  Transmission Date: 20160304
  Serious: No
  Sender: FDA-Public Use
  Company Number: US-PFIZER INC-2015371642

PATIENT
  Age: 62 Year
  Sex: Female
  Weight: 60 kg

DRUGS (4)
  1. METHOTREXATE [Concomitant]
     Active Substance: METHOTREXATE
     Dosage: UNK (INJECTION EVERY WEDNESDAY)
  2. HYDROCODONE [Concomitant]
     Active Substance: HYDROCODONE
     Dosage: 10/325 MG, (4 TIMES A DAY OR AS NEEDED)
  3. XELJANZ [Suspect]
     Active Substance: TOFACITINIB CITRATE
     Indication: RHEUMATOID ARTHRITIS
     Dosage: 5 MG, 2X/DAY
     Dates: start: 201502
  4. FOLIC ACID. [Concomitant]
     Active Substance: FOLIC ACID
     Dosage: 1 MG, UNK

REACTIONS (1)
  - Abscess [Unknown]

NARRATIVE: CASE EVENT DATE: 20151028
